FAERS Safety Report 9454023 (Version 9)
Quarter: 2015Q2

REPORT INFORMATION
  Report Type: Report from Study
  Country: JP (occurrence: JP)
  Receive Date: 20130812
  Receipt Date: 20150504
  Transmission Date: 20150821
  Serious: Yes (Death, Life-Threatening, Hospitalization, Disabling)
  Sender: FDA-Public Use
  Company Number: JP-PFIZER INC-2013125843

PATIENT
  Age: 70 Year
  Sex: Female
  Weight: 46 kg

DRUGS (2)
  1. XALKORI [Suspect]
     Active Substance: CRIZOTINIB
     Indication: NON-SMALL CELL LUNG CANCER
     Dosage: 250 MG, 2X/DAY
     Route: 048
     Dates: start: 20120903, end: 20130210
  2. XALKORI [Suspect]
     Active Substance: CRIZOTINIB
     Dosage: 100 MG, 2X/DAY
     Route: 048
     Dates: start: 20140505

REACTIONS (6)
  - Pulmonary embolism [Recovering/Resolving]
  - Pulmonary embolism [Recovering/Resolving]
  - Deep vein thrombosis [Recovering/Resolving]
  - Non-small cell lung cancer [Fatal]
  - Disease progression [Fatal]
  - Deep vein thrombosis [Recovering/Resolving]

NARRATIVE: CASE EVENT DATE: 20121213
